FAERS Safety Report 5946518-1 (Version None)
Quarter: 2008Q4

REPORT INFORMATION
  Report Type: 
  Country: None (occurrence: None)
  Receive Date: 20081110
  Receipt Date: 20081029
  Transmission Date: 20090506
  Serious: Yes (Hospitalization)
  Sender: FDA-Public Use
  Company Number: B0544049A

PATIENT
  Age: 44 Year
  Sex: Male
  Weight: 70 kg

DRUGS (5)
  1. AUGMENTIN '125' [Suspect]
     Dosage: 1UNIT THREE TIMES PER DAY
     Route: 048
     Dates: start: 20080918, end: 20081001
  2. ROCEPHIN [Concomitant]
     Route: 042
     Dates: start: 20080918
  3. FLAGYL [Concomitant]
     Route: 048
     Dates: start: 20080919
  4. PHENOBARBITAL TAB [Concomitant]
     Indication: EPILEPSY
     Route: 065
  5. KEPPRA [Concomitant]
     Indication: EPILEPSY
     Route: 065

REACTIONS (3)
  - GENERALISED ERYTHEMA [None]
  - PYREXIA [None]
  - SKIN WARM [None]
